FAERS Safety Report 9487457 (Version 2)
Quarter: 2013Q3

REPORT INFORMATION
  Report Type: Spontaneous
  Country: US (occurrence: US)
  Receive Date: 20130725
  Receipt Date: 20130725
  Transmission Date: 20140515
  Serious: Yes (Hospitalization)
  Sender: FDA-Public Use
  Company Number: US-GLAXOSMITHKLINE-A0785894A

PATIENT
  Age: 72 Year
  Sex: Male
  Weight: 125 kg

DRUGS (4)
  1. AVANDIA [Suspect]
     Indication: DIABETES MELLITUS
     Dosage: 8MG PER DAY
     Route: 048
     Dates: start: 20070716, end: 200804
  2. PROSTAL [Concomitant]
  3. BENICAR [Concomitant]
  4. GEMFIBROZIL [Concomitant]

REACTIONS (2)
  - Cardiac failure congestive [Not Recovered/Not Resolved]
  - Fluid retention [Unknown]
